FAERS Safety Report 11905598 (Version 1)
Quarter: 2016Q1

REPORT INFORMATION
  Report Type: Spontaneous
  Country: IT (occurrence: IT)
  Receive Date: 20160109
  Receipt Date: 20160109
  Transmission Date: 20160526
  Serious: Yes (Hospitalization, Other)
  Sender: FDA-Public Use
  Company Number: IT-BRISTOL-MYERS SQUIBB COMPANY-BMS-2015-092226

PATIENT
  Age: 67 Year
  Sex: Male

DRUGS (4)
  1. TORVAST [Concomitant]
     Active Substance: ATORVASTATIN
     Indication: HYPERLIPIDAEMIA
     Dosage: 1 UNIT, UNK
     Route: 048
     Dates: start: 20121123
  2. COUMADIN [Suspect]
     Active Substance: WARFARIN SODIUM
     Indication: PROPHYLAXIS
     Dosage: 1 UNIT, QD
     Route: 048
     Dates: start: 20111014, end: 20151016
  3. ZYLORIC [Concomitant]
     Active Substance: ALLOPURINOL
     Indication: BLOOD URIC ACID INCREASED
     Dosage: 1 UNIT, UNK
     Route: 048
     Dates: start: 20121123
  4. CARDICOR [Concomitant]
     Active Substance: BISOPROLOL
     Indication: ARRHYTHMIA SUPRAVENTRICULAR
     Dosage: 1 UNIT, UNK
     Route: 048
     Dates: start: 20121123

REACTIONS (3)
  - Haemorrhage [Recovering/Resolving]
  - Haematoma [Recovering/Resolving]
  - Head injury [Unknown]

NARRATIVE: CASE EVENT DATE: 20151016
